FAERS Safety Report 17286744 (Version 15)
Quarter: 2021Q1

REPORT INFORMATION
  Report Type: Spontaneous
  Country: JP (occurrence: JP)
  Receive Date: 20200119
  Receipt Date: 20210219
  Transmission Date: 20210419
  Serious: Yes (Life-Threatening, Hospitalization, Disabling, Other)
  Sender: FDA-Public Use
  Company Number: JP-BRISTOL-MYERS SQUIBB COMPANY-BMS-2020-002865

PATIENT
  Age: 73 Year
  Sex: Female
  Weight: 41 kg

DRUGS (22)
  1. OPDIVO [Suspect]
     Active Substance: NIVOLUMAB
     Indication: METASTATIC RENAL CELL CARCINOMA
     Dosage: 240 MILLIGRAM, ONE TIME DOSE
     Route: 041
     Dates: start: 20191024, end: 20191205
  2. CLINDAMYCIN. [Concomitant]
     Active Substance: CLINDAMYCIN
     Indication: PRODUCT USED FOR UNKNOWN INDICATION
     Dosage: UNK
     Route: 065
     Dates: start: 20191224
  3. HYDROCORTONE ACETATE [Concomitant]
     Dosage: 200 MILLIGRAM
     Route: 065
     Dates: start: 20200101, end: 20200101
  4. POTASSIUM IODIDE. [Concomitant]
     Active Substance: POTASSIUM IODIDE
     Indication: THYROTOXIC CRISIS
     Dosage: UNK
     Route: 065
     Dates: start: 20200103
  5. NORVASC [Concomitant]
     Active Substance: AMLODIPINE BESYLATE
     Indication: PRODUCT USED FOR UNKNOWN INDICATION
     Dosage: 2.5 MILLIGRAM, EVERYDAY
     Route: 048
  6. PREDNISOLONE. [Concomitant]
     Active Substance: PREDNISOLONE
     Dosage: 25 MILLIGRAM
     Route: 065
     Dates: start: 20200127, end: 20200202
  7. THYRADIN [Concomitant]
     Active Substance: LEVOTHYROXINE
     Indication: HYPOTHYROIDISM
     Dosage: 25 MICROGRAM
     Route: 065
     Dates: start: 20200120
  8. CIPROXAN BAYER YAKUHIN [Concomitant]
     Indication: PRODUCT USED FOR UNKNOWN INDICATION
     Dosage: UNK
     Route: 065
     Dates: start: 20200101
  9. YERVOY [Suspect]
     Active Substance: IPILIMUMAB
     Indication: METASTATIC RENAL CELL CARCINOMA
     Dosage: 46 MILLIGRAM, ONE TIME DOSE
     Route: 041
     Dates: start: 20191024, end: 20191205
  10. YERVOY [Suspect]
     Active Substance: IPILIMUMAB
     Indication: METASTASES TO LUNG
  11. ZOSYN [Concomitant]
     Active Substance: PIPERACILLIN SODIUM\TAZOBACTAM SODIUM
     Indication: PRODUCT USED FOR UNKNOWN INDICATION
     Dosage: UNK
     Route: 065
     Dates: start: 20191230
  12. HYDROCORTONE ACETATE [Concomitant]
     Indication: THYROTOXIC CRISIS
     Dosage: 300 MILLIGRAM
     Route: 065
     Dates: start: 20191231, end: 20191231
  13. PREDNISOLONE. [Concomitant]
     Active Substance: PREDNISOLONE
     Indication: PRODUCT USED FOR UNKNOWN INDICATION
     Dosage: 45 MILLIGRAM
     Route: 065
     Dates: start: 20200113, end: 20200119
  14. PREDNISOLONE. [Concomitant]
     Active Substance: PREDNISOLONE
     Dosage: 35 MILLIGRAM
     Route: 065
     Dates: start: 20200120, end: 20200126
  15. METHYLPREDNISOLONE. [Concomitant]
     Active Substance: METHYLPREDNISOLONE
     Indication: PRODUCT USED FOR UNKNOWN INDICATION
     Dosage: 1000 MILLIGRAM
     Route: 065
     Dates: start: 20200110, end: 20200112
  16. LUNESTA [Concomitant]
     Active Substance: ESZOPICLONE
     Indication: PRODUCT USED FOR UNKNOWN INDICATION
     Dosage: 2 MILLIGRAM, EVERYDAY
     Route: 048
     Dates: start: 20190929
  17. MEROPEN [MEROPENEM] [Concomitant]
     Active Substance: MEROPENEM
     Indication: PRODUCT USED FOR UNKNOWN INDICATION
     Dosage: UNK
     Route: 065
     Dates: start: 20191231
  18. HYDROCORTONE ACETATE [Concomitant]
     Dosage: 50 MILLIGRAM
     Route: 065
     Dates: start: 20200103
  19. PREDNISOLONE. [Concomitant]
     Active Substance: PREDNISOLONE
     Dosage: 15 MILLIGRAM
     Route: 065
     Dates: start: 20200203
  20. CUBICIN [Concomitant]
     Active Substance: DAPTOMYCIN
     Indication: PRODUCT USED FOR UNKNOWN INDICATION
     Route: 065
  21. OPDIVO [Suspect]
     Active Substance: NIVOLUMAB
     Indication: METASTASES TO LUNG
     Dosage: UNK MILLIGRAM
     Route: 041
     Dates: start: 202004, end: 202009
  22. HYDROCORTONE ACETATE [Concomitant]
     Dosage: 100 MILLIGRAM
     Route: 065
     Dates: start: 20200102, end: 20200102

REACTIONS (13)
  - Steroid diabetes [Unknown]
  - Productive cough [Unknown]
  - Enterocolitis [Recovered/Resolved]
  - Pancreatitis [Recovered/Resolved]
  - Stress cardiomyopathy [Unknown]
  - Hepatic function abnormal [Unknown]
  - Nephritis [Recovered/Resolved]
  - Cough [Unknown]
  - Thyroiditis [Recovered/Resolved with Sequelae]
  - Adrenocorticotropic hormone deficiency [Recovered/Resolved with Sequelae]
  - Rash [Recovered/Resolved]
  - Encephalitis [Recovered/Resolved with Sequelae]
  - Secondary adrenocortical insufficiency [Recovered/Resolved with Sequelae]

NARRATIVE: CASE EVENT DATE: 20191216
